FAERS Safety Report 8851053 (Version 2)
Quarter: 2012Q4

REPORT INFORMATION
  Report Type: 
  Country: US (occurrence: US)
  Receive Date: 20121019
  Receipt Date: 20121228
  Transmission Date: 20130627
  Serious: Yes (Hospitalization, Other)
  Sender: FDA-Public Use
  Company Number: US-NAPPMUNDI-USA-2012-0094261

PATIENT
  Age: 46 Year
  Sex: Female

DRUGS (2)
  1. BUTRANS [Suspect]
     Indication: PRODUCT USED FOR UNKNOWN INDICATION
     Dosage: 20 mcg, UNK
     Route: 062
  2. PERCOCET                           /00867901/ [Suspect]
     Indication: DRUG ABUSE
     Dosage: UNK mg, see text
     Route: 048

REACTIONS (6)
  - Drug abuse [Recovered/Resolved]
  - Depressed level of consciousness [Recovered/Resolved]
  - Lethargy [Recovered/Resolved]
  - Wrong technique in drug usage process [Unknown]
  - Malaise [Unknown]
  - Drug effect increased [Unknown]
